FAERS Safety Report 10401884 (Version 1)
Quarter: 2014Q3

REPORT INFORMATION
  Report Type: Spontaneous
  Country: US (occurrence: None)
  Receive Date: 20140820
  Receipt Date: 20140820
  Transmission Date: 20150326
  Serious: Yes (Other)
  Sender: FDA-Public Use
  Company Number: None

PATIENT
  Age: 22 Year
  Sex: Female

DRUGS (1)
  1. MAKENA [Suspect]
     Active Substance: HYDROXYPROGESTERONE CAPROATE
     Dosage: MAKENA 250MG/ML MDV (5ML/VL) 1ML IM WKLY IM
     Route: 030
     Dates: start: 20140513

REACTIONS (2)
  - Injection site reaction [None]
  - Rash [None]

NARRATIVE: CASE EVENT DATE: 201407
